FAERS Safety Report 25946215 (Version 1)
Quarter: 2025Q4

REPORT INFORMATION
  Report Type: Spontaneous
  Country: US (occurrence: US)
  Receive Date: 20251022
  Receipt Date: 20251022
  Transmission Date: 20260118
  Serious: Yes (Other)
  Sender: SANOFI AVENTIS
  Company Number: US-SA-2025SA311815

PATIENT
  Sex: Male
  Weight: 90.91 kg

DRUGS (1)
  1. DUPIXENT [Suspect]
     Active Substance: DUPILUMAB
     Indication: Dermatitis atopic
     Dosage: 300 MG, QOW
     Route: 058

REACTIONS (7)
  - Cerebrovascular accident [Unknown]
  - Cerebral haemorrhage [Unknown]
  - Bronchitis [Unknown]
  - Urinary tract infection [Unknown]
  - Coronary artery bypass [Unknown]
  - Eczema [Unknown]
  - Rash [Unknown]
